FAERS Safety Report 22962969 (Version 2)
Quarter: 2023Q4

REPORT INFORMATION
  Report Type: Spontaneous
  Country: CA (occurrence: CA)
  Receive Date: 20230920
  Receipt Date: 20231110
  Transmission Date: 20240109
  Serious: Yes (Other)
  Sender: FDA-Public Use
  Company Number: CA-PFIZER INC-202101514396

PATIENT
  Age: 71 Year
  Sex: Female
  Weight: 48 kg

DRUGS (1)
  1. RUXIENCE [Suspect]
     Active Substance: RITUXIMAB-PVVR
     Indication: Autoimmune myositis
     Dosage: 1000 MG,EVERY 2 WEEK,2 DOSES
     Route: 042
     Dates: start: 20230131, end: 20230223

REACTIONS (4)
  - Bronchiectasis [Unknown]
  - Pseudomonas infection [Unknown]
  - Bronchitis [Unknown]
  - Off label use [Unknown]
